FAERS Safety Report 21799784 (Version 1)
Quarter: 2022Q4

REPORT INFORMATION
  Report Type: Spontaneous
  Country: US (occurrence: None)
  Receive Date: 20221229
  Receipt Date: 20221229
  Transmission Date: 20230113
  Serious: No
  Sender: FDA-Public Use
  Company Number: None

PATIENT
  Sex: Female

DRUGS (1)
  1. SILDENAFIL [Suspect]
     Active Substance: SILDENAFIL
     Dosage: 1.5ML TID ORAL
     Route: 048

REACTIONS (3)
  - Kawasaki^s disease [None]
  - Cardiac disorder [None]
  - Disease complication [None]
